FAERS Safety Report 21830223 (Version 3)
Quarter: 2023Q2

REPORT INFORMATION
  Report Type: Other
  Country: IN (occurrence: None)
  Receive Date: 20230106
  Receipt Date: 20230515
  Transmission Date: 20230722
  Serious: Yes (Other)
  Sender: FDA-Public Use
  Company Number: IN-ROCHE-3246742

PATIENT
  Age: 50 Year
  Sex: Female

DRUGS (1)
  1. TECENTRIQ [Suspect]
     Active Substance: ATEZOLIZUMAB
     Indication: Triple negative breast cancer
     Route: 041
     Dates: start: 20221105

REACTIONS (5)
  - Arthralgia [Unknown]
  - Pain in jaw [Unknown]
  - Pneumonia [Unknown]
  - Asthenia [Unknown]
  - Drug ineffective [Unknown]
